FAERS Safety Report 23714778 (Version 1)
Quarter: 2024Q2

REPORT INFORMATION
  Report Type: Spontaneous
  Country: US (occurrence: US)
  Receive Date: 20240406
  Receipt Date: 20240406
  Transmission Date: 20240716
  Serious: Yes (Hospitalization, Other)
  Sender: FDA-Public Use
  Company Number: US-ABBVIE-5707920

PATIENT
  Age: 61 Year
  Sex: Female

DRUGS (2)
  1. UBRELVY [Suspect]
     Active Substance: UBROGEPANT
     Indication: Migraine
     Dosage: FORM STRENGTH :100 MILLIGRAM
     Route: 048
     Dates: start: 20240105, end: 20240105
  2. AJOVY [Concomitant]
     Active Substance: FREMANEZUMAB-VFRM
     Indication: Migraine

REACTIONS (2)
  - Anaphylactic shock [Unknown]
  - Vocal cord paralysis [Unknown]

NARRATIVE: CASE EVENT DATE: 20240105
